FAERS Safety Report 6899227-9 (Version None)
Quarter: 2010Q3

REPORT INFORMATION
  Report Type: 
  Country: None (occurrence: None)
  Receive Date: 20100802
  Receipt Date: 20080327
  Transmission Date: 20110219
  Serious: No
  Sender: FDA-Public Use
  Company Number: US-PFIZER INC-2007061461

PATIENT
  Sex: Female
  Weight: 77.1 kg

DRUGS (7)
  1. LYRICA [Suspect]
     Indication: FIBROMYALGIA
     Dosage: INTERVAL: EVERY DAY
     Route: 048
     Dates: start: 20070613
  2. LOVASTATIN [Concomitant]
     Dates: start: 20070601
  3. FEXOFENADINE [Concomitant]
     Dates: start: 20070701
  4. FLUOXETINE [Concomitant]
     Dates: start: 20050501
  5. FLUTICASONE [Concomitant]
     Route: 045
  6. TRAMADOL HYDROCHLORIDE [Concomitant]
     Dates: start: 20070501
  7. OMEPRAZOLE [Concomitant]
     Dates: start: 20060201

REACTIONS (1)
  - WEIGHT INCREASED [None]
